FAERS Safety Report 10810289 (Version 1)
Quarter: 2015Q1

REPORT INFORMATION
  Report Type: Spontaneous
  Country: US (occurrence: None)
  Receive Date: 20150212
  Receipt Date: 20150212
  Transmission Date: 20150721
  Serious: No
  Sender: FDA-Public Use
  Company Number: None

PATIENT
  Age: 71 Year
  Sex: Female
  Weight: 74.84 kg

DRUGS (13)
  1. ADVAIR DISKUS [Concomitant]
     Active Substance: FLUTICASONE PROPIONATE\SALMETEROL XINAFOATE
  2. AREDS PRESEVISION MULTI-VIT [Concomitant]
  3. KRILL OIL [Concomitant]
     Active Substance: DIETARY SUPPLEMENT
  4. ASPIRIN. [Concomitant]
     Active Substance: ASPIRIN
  5. LEVOTHYROXINE [Concomitant]
     Active Substance: LEVOTHYROXINE
  6. RANITIDINE [Concomitant]
     Active Substance: RANITIDINE\RANITIDINE HYDROCHLORIDE
  7. D3 [Concomitant]
     Active Substance: 25-HYDROXYCHOLECALCIFEROL, 5-TRANS-
  8. LEVOFLOXACIN. [Suspect]
     Active Substance: LEVOFLOXACIN
     Indication: BACTERIAL INFECTION
     Dosage: 1 PILL 1 DAILY MOUTH + INJECTION
     Route: 048
     Dates: start: 20141111, end: 20141121
  9. METOPROLOL ER [Concomitant]
     Active Substance: METOPROLOL SUCCINATE
  10. BIOTIN [Concomitant]
     Active Substance: BIOTIN
  11. LIOTHYRONINE [Concomitant]
     Active Substance: LIOTHYRONINE
  12. LEVOFLOXACIN. [Suspect]
     Active Substance: LEVOFLOXACIN
     Indication: PNEUMONIA
     Dosage: 1 PILL 1 DAILY MOUTH + INJECTION
     Route: 048
     Dates: start: 20141111, end: 20141121
  13. TURMERIC [Concomitant]
     Active Substance: TURMERIC

REACTIONS (8)
  - Pain [None]
  - Pain in extremity [None]
  - Joint range of motion decreased [None]
  - Dyskinesia [None]
  - Musculoskeletal pain [None]
  - Asthenia [None]
  - Neck pain [None]
  - Chest pain [None]

NARRATIVE: CASE EVENT DATE: 20141120
